FAERS Safety Report 16620805 (Version 2)
Quarter: 2019Q3

REPORT INFORMATION
  Report Type: Spontaneous
  Country: US (occurrence: US)
  Receive Date: 20190723
  Receipt Date: 20190727
  Transmission Date: 20191004
  Serious: Yes (Disabling)
  Sender: FDA-Public Use
  Company Number: PHEH2019US030067

PATIENT
  Age: 68 Year
  Sex: Female
  Weight: 47.2 kg

DRUGS (1)
  1. RECLAST [Suspect]
     Active Substance: ZOLEDRONIC ACID
     Indication: OSTEOPOROSIS
     Dosage: UNK
     Route: 042

REACTIONS (1)
  - Ototoxicity [Not Recovered/Not Resolved]

NARRATIVE: CASE EVENT DATE: 201711
